FAERS Safety Report 25790621 (Version 2)
Quarter: 2025Q3

REPORT INFORMATION
  Report Type: Spontaneous
  Country: US (occurrence: US)
  Receive Date: 20250911
  Receipt Date: 20250926
  Transmission Date: 20251021
  Serious: Yes (Life-Threatening, Hospitalization)
  Sender: MYLAN
  Company Number: US-MYLANLABS-2025M1076095

PATIENT
  Age: 14 Year
  Sex: Male
  Weight: 54.2 kg

DRUGS (88)
  1. PREDNISONE [Suspect]
     Active Substance: PREDNISONE
     Indication: Asthmatic crisis
  2. PREDNISONE [Suspect]
     Active Substance: PREDNISONE
     Route: 048
  3. PREDNISONE [Suspect]
     Active Substance: PREDNISONE
     Route: 048
  4. PREDNISONE [Suspect]
     Active Substance: PREDNISONE
  5. ALBUTEROL [Suspect]
     Active Substance: ALBUTEROL
     Indication: Asthmatic crisis
  6. ALBUTEROL [Suspect]
     Active Substance: ALBUTEROL
  7. ALBUTEROL [Suspect]
     Active Substance: ALBUTEROL
     Route: 055
  8. ALBUTEROL [Suspect]
     Active Substance: ALBUTEROL
     Route: 055
  9. ALBUTEROL [Suspect]
     Active Substance: ALBUTEROL
     Dosage: 10 MILLIGRAM, QH, VIA NEBULISER, RESPIRATORY
  10. ALBUTEROL [Suspect]
     Active Substance: ALBUTEROL
     Dosage: 10 MILLIGRAM, QH, VIA NEBULISER, RESPIRATORY
  11. ALBUTEROL [Suspect]
     Active Substance: ALBUTEROL
     Dosage: 10 MILLIGRAM, QH, VIA NEBULISER, RESPIRATORY
     Route: 055
  12. ALBUTEROL [Suspect]
     Active Substance: ALBUTEROL
     Dosage: 10 MILLIGRAM, QH, VIA NEBULISER, RESPIRATORY
     Route: 055
  13. MAGNESIUM [Suspect]
     Active Substance: MAGNESIUM
     Indication: Asthmatic crisis
  14. MAGNESIUM [Suspect]
     Active Substance: MAGNESIUM
  15. MAGNESIUM [Suspect]
     Active Substance: MAGNESIUM
     Route: 042
  16. MAGNESIUM [Suspect]
     Active Substance: MAGNESIUM
     Route: 042
  17. MAGNESIUM [Suspect]
     Active Substance: MAGNESIUM
     Dosage: 20 MILLIGRAM/KILOGRAM, QH,INFUSION
  18. MAGNESIUM [Suspect]
     Active Substance: MAGNESIUM
     Dosage: 20 MILLIGRAM/KILOGRAM, QH,INFUSION
  19. MAGNESIUM [Suspect]
     Active Substance: MAGNESIUM
     Dosage: 20 MILLIGRAM/KILOGRAM, QH,INFUSION
     Route: 042
  20. MAGNESIUM [Suspect]
     Active Substance: MAGNESIUM
     Dosage: 20 MILLIGRAM/KILOGRAM, QH,INFUSION
     Route: 042
  21. MAGNESIUM [Suspect]
     Active Substance: MAGNESIUM
     Dosage: 25 MILLIGRAM/KILOGRAM, QH, INFUSION
  22. MAGNESIUM [Suspect]
     Active Substance: MAGNESIUM
     Dosage: 25 MILLIGRAM/KILOGRAM, QH, INFUSION
     Route: 042
  23. MAGNESIUM [Suspect]
     Active Substance: MAGNESIUM
     Dosage: 25 MILLIGRAM/KILOGRAM, QH, INFUSION
  24. MAGNESIUM [Suspect]
     Active Substance: MAGNESIUM
     Dosage: 25 MILLIGRAM/KILOGRAM, QH, INFUSION
     Route: 042
  25. DEXMEDETOMIDINE [Suspect]
     Active Substance: DEXMEDETOMIDINE
     Indication: Asthmatic crisis
     Dosage: 0.4 MICROGRAM/KILOGRAM, QH, INFUSION
  26. DEXMEDETOMIDINE [Suspect]
     Active Substance: DEXMEDETOMIDINE
     Dosage: 0.4 MICROGRAM/KILOGRAM, QH, INFUSION
  27. DEXMEDETOMIDINE [Suspect]
     Active Substance: DEXMEDETOMIDINE
     Dosage: 0.4 MICROGRAM/KILOGRAM, QH, INFUSION
     Route: 065
  28. DEXMEDETOMIDINE [Suspect]
     Active Substance: DEXMEDETOMIDINE
     Dosage: 0.4 MICROGRAM/KILOGRAM, QH, INFUSION
     Route: 065
  29. DEXMEDETOMIDINE [Suspect]
     Active Substance: DEXMEDETOMIDINE
     Dosage: 1 MICROGRAM/KILOGRAM, QH, INFUSION
  30. DEXMEDETOMIDINE [Suspect]
     Active Substance: DEXMEDETOMIDINE
     Dosage: 1 MICROGRAM/KILOGRAM, QH, INFUSION
  31. DEXMEDETOMIDINE [Suspect]
     Active Substance: DEXMEDETOMIDINE
     Dosage: 1 MICROGRAM/KILOGRAM, QH, INFUSION
     Route: 065
  32. DEXMEDETOMIDINE [Suspect]
     Active Substance: DEXMEDETOMIDINE
     Dosage: 1 MICROGRAM/KILOGRAM, QH, INFUSION
     Route: 065
  33. DEXMEDETOMIDINE [Suspect]
     Active Substance: DEXMEDETOMIDINE
     Indication: Asthmatic crisis
  34. DEXMEDETOMIDINE [Suspect]
     Active Substance: DEXMEDETOMIDINE
     Route: 065
  35. DEXMEDETOMIDINE [Suspect]
     Active Substance: DEXMEDETOMIDINE
     Route: 065
  36. DEXMEDETOMIDINE [Suspect]
     Active Substance: DEXMEDETOMIDINE
  37. METHYLPREDNISOLONE [Suspect]
     Active Substance: METHYLPREDNISOLONE
     Indication: Asthmatic crisis
     Dosage: 40 MILLIGRAM, Q6H
  38. METHYLPREDNISOLONE [Suspect]
     Active Substance: METHYLPREDNISOLONE
     Dosage: 40 MILLIGRAM, Q6H
     Route: 042
  39. METHYLPREDNISOLONE [Suspect]
     Active Substance: METHYLPREDNISOLONE
     Dosage: 40 MILLIGRAM, Q6H
     Route: 042
  40. METHYLPREDNISOLONE [Suspect]
     Active Substance: METHYLPREDNISOLONE
     Dosage: 40 MILLIGRAM, Q6H
  41. MAGNESIUM [Suspect]
     Active Substance: MAGNESIUM
     Indication: Asthmatic crisis
  42. MAGNESIUM [Suspect]
     Active Substance: MAGNESIUM
     Route: 042
  43. MAGNESIUM [Suspect]
     Active Substance: MAGNESIUM
     Route: 042
  44. MAGNESIUM [Suspect]
     Active Substance: MAGNESIUM
  45. ALBUTEROL\IPRATROPIUM [Suspect]
     Active Substance: ALBUTEROL\IPRATROPIUM
     Indication: Asthmatic crisis
  46. ALBUTEROL\IPRATROPIUM [Suspect]
     Active Substance: ALBUTEROL\IPRATROPIUM
     Route: 055
  47. ALBUTEROL\IPRATROPIUM [Suspect]
     Active Substance: ALBUTEROL\IPRATROPIUM
     Route: 055
  48. ALBUTEROL\IPRATROPIUM [Suspect]
     Active Substance: ALBUTEROL\IPRATROPIUM
  49. IPRATROPIUM [Suspect]
     Active Substance: IPRATROPIUM
     Indication: Asthmatic crisis
     Dosage: 0.5 MILLIGRAM, Q6H, AEROSOL
  50. IPRATROPIUM [Suspect]
     Active Substance: IPRATROPIUM
     Dosage: 0.5 MILLIGRAM, Q6H, AEROSOL
     Route: 065
  51. IPRATROPIUM [Suspect]
     Active Substance: IPRATROPIUM
     Dosage: 0.5 MILLIGRAM, Q6H, AEROSOL
     Route: 065
  52. IPRATROPIUM [Suspect]
     Active Substance: IPRATROPIUM
     Dosage: 0.5 MILLIGRAM, Q6H, AEROSOL
  53. KETAMINE [Suspect]
     Active Substance: KETAMINE
     Indication: Asthmatic crisis
  54. KETAMINE [Suspect]
     Active Substance: KETAMINE
  55. KETAMINE [Suspect]
     Active Substance: KETAMINE
     Route: 042
  56. KETAMINE [Suspect]
     Active Substance: KETAMINE
     Route: 042
  57. KETAMINE [Suspect]
     Active Substance: KETAMINE
     Dosage: 1 MILLIGRAM/KILOGRAM, QH, INFUSION
  58. KETAMINE [Suspect]
     Active Substance: KETAMINE
     Dosage: 1 MILLIGRAM/KILOGRAM, QH, INFUSION
  59. KETAMINE [Suspect]
     Active Substance: KETAMINE
     Dosage: 1 MILLIGRAM/KILOGRAM, QH, INFUSION
     Route: 042
  60. KETAMINE [Suspect]
     Active Substance: KETAMINE
     Dosage: 1 MILLIGRAM/KILOGRAM, QH, INFUSION
     Route: 042
  61. AMINOPHYLLINE [Suspect]
     Active Substance: AMINOPHYLLINE
     Indication: Asthmatic crisis
     Dosage: 0.6 MILLIGRAM/KILOGRAM, QH, INFUSION
  62. AMINOPHYLLINE [Suspect]
     Active Substance: AMINOPHYLLINE
     Dosage: 0.6 MILLIGRAM/KILOGRAM, QH, INFUSION
     Route: 042
  63. AMINOPHYLLINE [Suspect]
     Active Substance: AMINOPHYLLINE
     Dosage: 0.6 MILLIGRAM/KILOGRAM, QH, INFUSION
     Route: 042
  64. AMINOPHYLLINE [Suspect]
     Active Substance: AMINOPHYLLINE
     Dosage: 0.6 MILLIGRAM/KILOGRAM, QH, INFUSION
  65. HELIOX [Suspect]
     Active Substance: OXYGEN
     Indication: Asthmatic crisis
  66. HELIOX [Suspect]
     Active Substance: OXYGEN
     Route: 065
  67. HELIOX [Suspect]
     Active Substance: OXYGEN
     Route: 065
  68. HELIOX [Suspect]
     Active Substance: OXYGEN
  69. SEVOFLURANE [Concomitant]
     Active Substance: SEVOFLURANE
     Indication: Asthmatic crisis
  70. SEVOFLURANE [Concomitant]
     Active Substance: SEVOFLURANE
     Indication: Induction of anaesthesia
     Route: 055
  71. SEVOFLURANE [Concomitant]
     Active Substance: SEVOFLURANE
     Route: 055
  72. SEVOFLURANE [Concomitant]
     Active Substance: SEVOFLURANE
  73. SEVOFLURANE [Concomitant]
     Active Substance: SEVOFLURANE
     Indication: Asthmatic crisis
  74. SEVOFLURANE [Concomitant]
     Active Substance: SEVOFLURANE
     Indication: Induction of anaesthesia
     Route: 055
  75. SEVOFLURANE [Concomitant]
     Active Substance: SEVOFLURANE
     Route: 055
  76. SEVOFLURANE [Concomitant]
     Active Substance: SEVOFLURANE
  77. LACTATED RINGERS SOLUTION [Concomitant]
     Active Substance: CALCIUM CHLORIDE\POTASSIUM CHLORIDE\SODIUM CHLORIDE\SODIUM LACTATE
     Indication: Fluid replacement
  78. LACTATED RINGERS SOLUTION [Concomitant]
     Active Substance: CALCIUM CHLORIDE\POTASSIUM CHLORIDE\SODIUM CHLORIDE\SODIUM LACTATE
     Route: 065
  79. LACTATED RINGERS SOLUTION [Concomitant]
     Active Substance: CALCIUM CHLORIDE\POTASSIUM CHLORIDE\SODIUM CHLORIDE\SODIUM LACTATE
     Route: 065
  80. LACTATED RINGERS SOLUTION [Concomitant]
     Active Substance: CALCIUM CHLORIDE\POTASSIUM CHLORIDE\SODIUM CHLORIDE\SODIUM LACTATE
  81. LORAZEPAM [Concomitant]
     Active Substance: LORAZEPAM
     Indication: Anxiety
  82. LORAZEPAM [Concomitant]
     Active Substance: LORAZEPAM
     Route: 065
  83. LORAZEPAM [Concomitant]
     Active Substance: LORAZEPAM
     Route: 065
  84. LORAZEPAM [Concomitant]
     Active Substance: LORAZEPAM
  85. ROCURONIUM [Concomitant]
     Active Substance: ROCURONIUM BROMIDE
     Indication: Neuromuscular blocking therapy
  86. ROCURONIUM [Concomitant]
     Active Substance: ROCURONIUM BROMIDE
     Route: 065
  87. ROCURONIUM [Concomitant]
     Active Substance: ROCURONIUM BROMIDE
     Route: 065
  88. ROCURONIUM [Concomitant]
     Active Substance: ROCURONIUM BROMIDE

REACTIONS (2)
  - Drug ineffective [Unknown]
  - Off label use [Unknown]
